FAERS Safety Report 13998226 (Version 1)
Quarter: 2017Q3

REPORT INFORMATION
  Report Type: Spontaneous
  Country: US (occurrence: None)
  Receive Date: 20170921
  Receipt Date: 20170921
  Transmission Date: 20171128
  Serious: Yes (Other)
  Sender: FDA-Public Use
  Company Number: None

PATIENT
  Age: 60 Year
  Sex: Female
  Weight: 66.8 kg

DRUGS (1)
  1. CAPECITABINE 500MG [Suspect]
     Active Substance: CAPECITABINE
     Indication: PRODUCT USED FOR UNKNOWN INDICATION
     Dosage: 3000MG BIDX14D + 7D OFF BY MOUTH
     Route: 048
     Dates: start: 20170124

REACTIONS (2)
  - Skin exfoliation [None]
  - Pain in extremity [None]

NARRATIVE: CASE EVENT DATE: 20170511
